FAERS Safety Report 16226289 (Version 1)
Quarter: 2019Q2

REPORT INFORMATION
  Report Type: Spontaneous
  Country: US (occurrence: US)
  Receive Date: 20190423
  Receipt Date: 20190423
  Transmission Date: 20190711
  Serious: No
  Sender: FDA-Public Use
  Company Number: US-TEVA-2019-US-1031801

PATIENT
  Age: 47 Year
  Sex: Female

DRUGS (1)
  1. ALPRAZOLAM TABLETS ACTAVIS [Suspect]
     Active Substance: ALPRAZOLAM
     Indication: ANXIETY
     Route: 065

REACTIONS (4)
  - Insomnia [Unknown]
  - Anxiety [Unknown]
  - Headache [Unknown]
  - Drug ineffective [Unknown]

NARRATIVE: CASE EVENT DATE: 201903
